FAERS Safety Report 17587159 (Version 1)
Quarter: 2020Q1

REPORT INFORMATION
  Report Type: Report from Study
  Country: HN (occurrence: HN)
  Receive Date: 20200326
  Receipt Date: 20200326
  Transmission Date: 20200409
  Serious: Yes (Other)
  Sender: FDA-Public Use
  Company Number: NVSC2020HN084281

PATIENT
  Age: 75 Year
  Sex: Female

DRUGS (2)
  1. VYMADA [Suspect]
     Active Substance: SACUBITRIL\VALSARTAN
     Dosage: 50 MG (ONE IN MORNING AN D ONE IN AFTERNOON)
     Route: 065
  2. VYMADA [Suspect]
     Active Substance: SACUBITRIL\VALSARTAN
     Indication: PRODUCT USED FOR UNKNOWN INDICATION
     Dosage: 50 MG, QD (TABLET) (STARTED 5 TO 6 MONTHS AGO)
     Route: 065

REACTIONS (5)
  - Drug dependence [Unknown]
  - Malaise [Unknown]
  - Feeling abnormal [Unknown]
  - Cardiomegaly [Unknown]
  - Swelling [Unknown]
